FAERS Safety Report 9212838 (Version 1)
Quarter: 2013Q1

REPORT INFORMATION
  Report Type: Spontaneous
  Country: US (occurrence: None)
  Receive Date: 20120824
  Receipt Date: 20120824
  Transmission Date: 20140127
  Serious: Yes (Life-Threatening, Hospitalization)
  Sender: FDA-Public Use
  Company Number: A-NJ2012-66821

PATIENT
  Age: 76 Year
  Sex: Male

DRUGS (3)
  1. VELETRI [Concomitant]
     Dosage: 17NG/KG, PER MIN, IV DRIP
     Route: 041
     Dates: start: 20120515, end: 20120613
  2. SILDENAFIL (SILDENAFIL) [Concomitant]
  3. COUMADIN (WARFARIN  SODIUM) [Concomitant]

REACTIONS (2)
  - Acute respiratory failure [None]
  - Cardiac failure acute [None]
